FAERS Safety Report 7138177-X (Version None)
Quarter: 2010Q4

REPORT INFORMATION
  Report Type: 
  Country: None (occurrence: None)
  Receive Date: 20101206
  Receipt Date: 20091209
  Transmission Date: 20110411
  Serious: No
  Sender: FDA-Public Use
  Company Number: US-ABBOTT-09P-163-0595591-00

PATIENT
  Sex: Male
  Weight: 104.42 kg

DRUGS (5)
  1. OMNICEF [Suspect]
     Indication: VIRAL INFECTION
     Dates: start: 20090810, end: 20090820
  2. OMNICEF [Suspect]
     Indication: PHARYNGITIS
  3. MICARDIS [Concomitant]
     Indication: HYPERTENSION
  4. OMEPRAZOLE [Concomitant]
     Indication: GASTROOESOPHAGEAL REFLUX DISEASE
  5. CRESTOR [Concomitant]
     Indication: BLOOD CHOLESTEROL INCREASED

REACTIONS (1)
  - DYSGEUSIA [None]
